FAERS Safety Report 4550313-8 (Version None)
Quarter: 2005Q1

REPORT INFORMATION
  Report Type: 
  Country: None (occurrence: None)
  Receive Date: 20050111
  Receipt Date: 20050111
  Transmission Date: 20050727
  Serious: No
  Sender: FDA-Public Use
  Company Number: None

PATIENT
  Age: 79 Year
  Sex: Female
  Weight: 61.2356 kg

DRUGS (1)
  1. VANIQA [Suspect]
     Indication: HIRSUTISM
     Dosage: APPLYED TWICE DAILY
     Dates: start: 20030613, end: 20030927

REACTIONS (2)
  - PREMATURE AGEING [None]
  - SKIN WRINKLING [None]
